FAERS Safety Report 4400909-9 (Version None)
Quarter: 2004Q3

REPORT INFORMATION
  Report Type: 
  Country: None (occurrence: None)
  Receive Date: 20040907
  Receipt Date: 20030723
  Transmission Date: 20050211
  Serious: No
  Sender: FDA-Public Use
  Company Number: US-BRISTOL-MYERS SQUIBB COMPANY-12345500

PATIENT
  Age: 80 Year
  Sex: Female
  Weight: 98 kg

DRUGS (8)
  1. COUMADIN [Suspect]
     Indication: ATRIAL FIBRILLATION
     Route: 048
  2. LANOXIN [Concomitant]
  3. CARDIZEM [Concomitant]
  4. ASACOL [Concomitant]
  5. POTASSIUM [Concomitant]
  6. FERROUS SULFATE TAB [Concomitant]
  7. LASIX [Concomitant]
  8. ZOCOR [Concomitant]

REACTIONS (3)
  - ARTHROPOD BITE [None]
  - OEDEMA PERIPHERAL [None]
  - PRURITUS [None]
